FAERS Safety Report 18145076 (Version 1)
Quarter: 2020Q3

REPORT INFORMATION
  Report Type: Spontaneous
  Country: US (occurrence: US)
  Receive Date: 20200813
  Receipt Date: 20200813
  Transmission Date: 20201103
  Serious: No
  Sender: FDA-Public Use
  Company Number: US-GLENMARK PHARMACEUTICALS-2020GMK047895

PATIENT

DRUGS (1)
  1. FLUOCINOLONE ACETONIDE 0.01% TOPICAL OIL (BODY OIL) [Suspect]
     Active Substance: FLUOCINOLONE ACETONIDE
     Indication: SKIN DISORDER
     Dosage: UNK (3 TIMES PER WEEK)
     Route: 061

REACTIONS (1)
  - Product use issue [Unknown]
